FAERS Safety Report 10028443 (Version 1)
Quarter: 2014Q1

REPORT INFORMATION
  Report Type: Spontaneous
  Country: PL (occurrence: None)
  Receive Date: 20140319
  Receipt Date: 20140319
  Transmission Date: 20141002
  Serious: Yes (Other)
  Sender: FDA-Public Use
  Company Number: 2236734

PATIENT
  Age: 57 Year
  Sex: Male
  Weight: 68 kg

DRUGS (3)
  1. CALCIUM FOLINATE [Suspect]
     Indication: RECTOSIGMOID CANCER
     Route: 042
     Dates: start: 20130826
  2. OXALIPLATIN [Suspect]
     Indication: RECTOSIGMOID CANCER
     Route: 042
     Dates: start: 20130826
  3. FLUOROURACIL [Suspect]
     Indication: RECTOSIGMOID CANCER
     Route: 042
     Dates: start: 20130826

REACTIONS (2)
  - Neutropenia [None]
  - Thrombocytopenia [None]
